FAERS Safety Report 6549150-4 (Version None)
Quarter: 2010Q1

REPORT INFORMATION
  Report Type: 
  Country: None (occurrence: None)
  Receive Date: 20100119
  Receipt Date: 20100105
  Transmission Date: 20100710
  Serious: Yes (Other)
  Sender: FDA-Public Use
  Company Number: 2010SP002390

PATIENT
  Age: 60 Year
  Sex: Male

DRUGS (1)
  1. INTRON A [Suspect]
     Indication: LIVER FUNCTION TEST ABNORMAL
     Dosage: 5 MIU; TIW; SC
     Route: 058

REACTIONS (2)
  - ADENOCARCINOMA [None]
  - KIDNEY TRANSPLANT REJECTION [None]
